FAERS Safety Report 4749405-X (Version None)
Quarter: 2005Q3

REPORT INFORMATION
  Report Type: 
  Country: None (occurrence: None)
  Receive Date: 20050819
  Receipt Date: 20050509
  Transmission Date: 20060218
  Serious: Yes (Death, Hospitalization, Other)
  Sender: FDA-Public Use
  Company Number: US-MERCK-0505USA01106

PATIENT
  Age: 76 Year
  Sex: Male
  Weight: 130 kg

DRUGS (11)
  1. VIOXX [Suspect]
     Indication: ARTHRITIS
     Route: 048
     Dates: start: 20001115, end: 20030518
  2. VIOXX [Suspect]
     Indication: ARTHRALGIA
     Route: 048
     Dates: start: 20001115, end: 20030518
  3. IMDUR [Concomitant]
     Route: 065
  4. PROBENECID [Concomitant]
     Route: 065
  5. ALLOPURINOL [Concomitant]
     Route: 065
  6. COMBIVENT [Concomitant]
     Route: 065
  7. AVANDIA [Concomitant]
     Route: 065
  8. LOPRESSOR [Concomitant]
     Route: 065
  9. INSULIN [Concomitant]
     Route: 065
  10. LASIX [Concomitant]
     Route: 065
  11. VASOTEC RPD [Concomitant]
     Route: 065

REACTIONS (30)
  - ACUTE PULMONARY OEDEMA [None]
  - ANAEMIA [None]
  - ASTHENIA [None]
  - ATRIAL FIBRILLATION [None]
  - ATRIAL FLUTTER [None]
  - ATRIAL TACHYCARDIA [None]
  - CARDIAC FAILURE CONGESTIVE [None]
  - CATARACT [None]
  - COAGULOPATHY [None]
  - CORONARY ARTERY DISEASE [None]
  - DECREASED ACTIVITY [None]
  - DECUBITUS ULCER [None]
  - DIABETIC ULCER [None]
  - DIARRHOEA [None]
  - DIVERTICULUM [None]
  - GASTRIC DISORDER [None]
  - GOUT [None]
  - HYPOAESTHESIA [None]
  - HYPOKALAEMIA [None]
  - ILEUS [None]
  - LUNG DISORDER [None]
  - MYOCARDIAL INFARCTION [None]
  - OEDEMA PERIPHERAL [None]
  - PANCREATITIS [None]
  - PLEURAL EFFUSION [None]
  - PULMONARY CONGESTION [None]
  - RENAL DISORDER [None]
  - RENAL FAILURE [None]
  - RESPIRATORY FAILURE [None]
  - SYNCOPE [None]
